FAERS Safety Report 24557481 (Version 1)
Quarter: 2024Q4

REPORT INFORMATION
  Report Type: Spontaneous
  Country: CA (occurrence: CA)
  Receive Date: 20241028
  Receipt Date: 20241028
  Transmission Date: 20250115
  Serious: Yes (Death)
  Sender: TEVA
  Company Number: CA-TEVA-VS-3257815

PATIENT
  Age: 38 Year
  Sex: Male

DRUGS (6)
  1. FENTANYL [Suspect]
     Active Substance: FENTANYL
     Indication: Drug abuse
     Route: 065
  2. MORPHINE [Suspect]
     Active Substance: MORPHINE
     Indication: Drug abuse
     Route: 065
  3. HERBALS\TETRAHYDROCANNABINOL UNSPECIFIED [Concomitant]
     Active Substance: HERBALS\TETRAHYDROCANNABINOL UNSPECIFIED
     Indication: Product used for unknown indication
     Route: 065
  4. CAFFEINE [Suspect]
     Active Substance: CAFFEINE
     Indication: Drug abuse
     Route: 065
  5. NALOXONE [Concomitant]
     Active Substance: NALOXONE
     Indication: Product used for unknown indication
     Route: 065
  6. HYDROMORPHONE [Suspect]
     Active Substance: HYDROMORPHONE
     Indication: Drug abuse
     Route: 065

REACTIONS (1)
  - Drug abuse [Fatal]
